FAERS Safety Report 15016337 (Version 2)
Quarter: 2023Q2

REPORT INFORMATION
  Report Type: Spontaneous
  Country: US (occurrence: US)
  Receive Date: 20180615
  Receipt Date: 20230422
  Transmission Date: 20230722
  Serious: Yes (Disabling)
  Sender: FDA-Public Use
  Company Number: US-TEVA-2018-US-907503

PATIENT
  Age: 58 Year
  Sex: Female
  Weight: 91.62 kg

DRUGS (7)
  1. DOCETAXEL [Suspect]
     Active Substance: DOCETAXEL
     Indication: Breast cancer female
     Dosage: NUMBER OF CYCLE - 04, FREQUENCY:EVERY THREE WEEKS, 150 MG
     Route: 042
     Dates: start: 20141209, end: 20150210
  2. DOCETAXEL [Suspect]
     Active Substance: DOCETAXEL
     Indication: Breast cancer female
     Dosage: NUMBER OF CYCLE - 04, FREQUENCY - EVERY THREE WEEKS , 150 MG
     Route: 042
     Dates: start: 20141209, end: 20150210
  3. CYTOXAN [Concomitant]
     Active Substance: CYCLOPHOSPHAMIDE
     Indication: Breast cancer female
     Dosage: NUMBER OF CYCLE - 04, FREQUENCY - EVERY THREE WEEKS , 1200 MG
     Route: 042
     Dates: start: 20141209, end: 20150210
  4. CYTOXAN [Concomitant]
     Active Substance: CYCLOPHOSPHAMIDE
     Dosage: NUMBER OF CYCLE - 02, 600 MG/M2, 1200 MG?1.03-MAR-2015 1200 MG, 2 24-MAR-2015 1205 MG
     Route: 042
     Dates: start: 20150303, end: 20150324
  5. ANASTROZOLE [Concomitant]
     Active Substance: ANASTROZOLE
     Indication: Product used for unknown indication
     Route: 065
     Dates: start: 20150201
  6. LOSARTAN [Concomitant]
     Active Substance: LOSARTAN
     Indication: Product used for unknown indication
     Dosage: 100 MILLIGRAM DAILY;
     Route: 048
     Dates: start: 20130101
  7. NORCO [Concomitant]
     Active Substance: ACETAMINOPHEN\HYDROCODONE BITARTRATE
     Indication: Pain
     Dosage: 5 MG-325 MG  1 TABLET ORAL EVERY 4 HOURS  PRN
     Route: 048

REACTIONS (4)
  - Alopecia areata [Not Recovered/Not Resolved]
  - Madarosis [Not Recovered/Not Resolved]
  - Hair texture abnormal [Not Recovered/Not Resolved]
  - Hair colour changes [Not Recovered/Not Resolved]

NARRATIVE: CASE EVENT DATE: 20141223
